FAERS Safety Report 26044964 (Version 1)
Quarter: 2025Q4

REPORT INFORMATION
  Report Type: Spontaneous
  Country: RU (occurrence: RU)
  Receive Date: 20251114
  Receipt Date: 20251114
  Transmission Date: 20260117
  Serious: Yes (Other)
  Sender: TERSERA THERAPEUTICS
  Company Number: RU-ASTRAZENECA-202511EAF004639RU

PATIENT

DRUGS (5)
  1. GOSERELIN [Suspect]
     Active Substance: GOSERELIN
     Indication: Invasive breast carcinoma
     Dosage: 3.6 MILLIGRAM, Q4W
     Route: 065
     Dates: start: 202302
  2. ZOLADEX [Suspect]
     Active Substance: GOSERELIN ACETATE
     Indication: Invasive breast carcinoma
     Dosage: UNK
     Route: 065
  3. TAMOXIFEN [Suspect]
     Active Substance: TAMOXIFEN
     Indication: Invasive breast carcinoma
     Dosage: 20 MILLIGRAM, Q4W
     Route: 065
  4. ANASTROZOLE [Suspect]
     Active Substance: ANASTROZOLE
     Indication: Invasive breast carcinoma
     Dosage: 1 MILLIGRAM, QD
     Route: 065
     Dates: start: 202310
  5. RIBOCICLIB [Concomitant]
     Active Substance: RIBOCICLIB
     Indication: Invasive breast carcinoma
     Dosage: UNK MILLIGRAM
     Route: 065

REACTIONS (3)
  - Metastases to liver [Not Recovered/Not Resolved]
  - Malignant neoplasm progression [Not Recovered/Not Resolved]
  - Drug resistance [Unknown]

NARRATIVE: CASE EVENT DATE: 20230901
